FAERS Safety Report 24278839 (Version 1)
Quarter: 2024Q3

REPORT INFORMATION
  Report Type: Spontaneous
  Country: US (occurrence: None)
  Receive Date: 20240831
  Receipt Date: 20240831
  Transmission Date: 20241016
  Serious: Yes (Hospitalization)
  Sender: Public
  Company Number: None

PATIENT
  Age: 26 Year
  Sex: Male
  Weight: 81 kg

DRUGS (7)
  1. CANNABIDIOL\HERBALS [Suspect]
     Active Substance: CANNABIDIOL\HERBALS
     Indication: Arthritis
     Dosage: 2 DROPS AS NEEDED ORAL
     Route: 048
     Dates: start: 20240807, end: 20240812
  2. CANNABIDIOL\HERBALS [Suspect]
     Active Substance: CANNABIDIOL\HERBALS
     Indication: Anxiety
  3. .DELTA.8-TETRAHYDROCANNABINOL\HERBALS [Suspect]
     Active Substance: .DELTA.8-TETRAHYDROCANNABINOL\HERBALS
     Indication: Mental disorder
     Dosage: OTHER QUANTITY : 2 GUMMIES (CHEWABLE)?FREQUENCY : DAILY ORAL?
     Route: 048
  4. .DELTA.8-TETRAHYDROCANNABINOL\HERBALS [Suspect]
     Active Substance: .DELTA.8-TETRAHYDROCANNABINOL\HERBALS
     Indication: Sleep disorder
  5. VITAMIN D3 [Concomitant]
     Active Substance: CHOLECALCIFEROL
  6. Multi-vitamins [Concomitant]
  7. advil [Concomitant]

REACTIONS (2)
  - Expired product administered [None]
  - Adverse reaction [None]

NARRATIVE: CASE EVENT DATE: 20240807
